FAERS Safety Report 4497920-9 (Version None)
Quarter: 2004Q4

REPORT INFORMATION
  Report Type: 
  Country: None (occurrence: None)
  Receive Date: 20041104
  Receipt Date: 20041020
  Transmission Date: 20050328
  Serious: Yes (Hospitalization)
  Sender: FDA-Public Use
  Company Number: 2004234021JP

PATIENT
  Age: 25 Year
  Sex: Male
  Weight: 55 kg

DRUGS (10)
  1. SOLU-MEDROL [Suspect]
     Indication: PERITONSILLITIS
     Dosage: 125 MG, QD, IV
     Route: 042
     Dates: start: 20040828, end: 20040828
  2. VOLTAREN [Suspect]
     Dosage: TID, ORAL
     Route: 048
     Dates: start: 20040828
  3. STRONG NEO-MINOPHAGEN C (CYSTEINE, AMINOACETIC ACID, GLYCYRRHIZIC ACID [Concomitant]
  4. MULTIVITAMIN [Concomitant]
  5. MELILOT (MELILOT) [Concomitant]
  6. FOSMICIN (FOSFOMYCIN CALCIUM) [Concomitant]
  7. MEIACT (CEFDITOREN PIVOXIL) [Concomitant]
  8. CELESTAMINE (BETAMETHASONE) [Concomitant]
  9. ADETPHOS (ADENOSINE TRIPHOSPHATE, DISODIUM SALT) [Concomitant]
  10. CYANOCOBALAMIN [Concomitant]

REACTIONS (5)
  - C-REACTIVE PROTEIN INCREASED [None]
  - CONDITION AGGRAVATED [None]
  - HYPOTHERMIA [None]
  - PALLOR [None]
  - PERITONSILLITIS [None]
